FAERS Safety Report 4708688-2 (Version None)
Quarter: 2005Q3

REPORT INFORMATION
  Report Type: 
  Country: None (occurrence: None)
  Receive Date: 20050706
  Receipt Date: 20050620
  Transmission Date: 20060218
  Serious: Yes (Other)
  Sender: FDA-Public Use
  Company Number: 199906330

PATIENT
  Age: 37 Year
  Sex: Female
  Weight: 50.8029 kg

DRUGS (1)
  1. BOTOX [Suspect]
     Indication: SKIN WRINKLING
     Dosage: 22 UNITS PRN IM
     Route: 030
     Dates: start: 19990716

REACTIONS (38)
  - ANXIETY [None]
  - AUTOIMMUNE DISORDER [None]
  - BONE PAIN [None]
  - CERVICAL SPINAL STENOSIS [None]
  - CHILLS [None]
  - DENTAL CARIES [None]
  - DEPRESSION [None]
  - DRUG INEFFECTIVE [None]
  - DRY EYE [None]
  - DYSKINESIA [None]
  - ERYTHEMA [None]
  - EYELID PTOSIS [None]
  - FACIAL BONES FRACTURE [None]
  - FACIAL PAIN [None]
  - FACIAL PALSY [None]
  - FACIAL PARESIS [None]
  - HEADACHE [None]
  - HYPOAESTHESIA [None]
  - INTERVERTEBRAL DISC DEGENERATION [None]
  - LIP DISORDER [None]
  - MOVEMENT DISORDER [None]
  - NASAL CONGESTION [None]
  - NASAL SEPTUM DEVIATION [None]
  - NECK PAIN [None]
  - NERVE INJURY [None]
  - PAIN IN JAW [None]
  - PARALYSIS [None]
  - PYREXIA [None]
  - RASH ERYTHEMATOUS [None]
  - ROAD TRAFFIC ACCIDENT [None]
  - SENSORY DISTURBANCE [None]
  - SINUSITIS [None]
  - SKIN NEOPLASM EXCISION [None]
  - SKIN SWELLING [None]
  - STRESS [None]
  - TEMPOROMANDIBULAR JOINT SYNDROME [None]
  - TENSION HEADACHE [None]
  - VISUAL FIELD TESTS ABNORMAL [None]
